FAERS Safety Report 19326579 (Version 1)
Quarter: 2021Q2

REPORT INFORMATION
  Report Type: Spontaneous
  Country: US (occurrence: US)
  Receive Date: 20210528
  Receipt Date: 20210528
  Transmission Date: 20210717
  Serious: No
  Sender: FDA-Public Use
  Company Number: US-PFIZER INC-2021480784

PATIENT
  Sex: Female

DRUGS (3)
  1. GABAPENTIN. [Suspect]
     Active Substance: GABAPENTIN
     Dosage: 200 MG, DAILY (AT NIGHT )
  2. VALIUM [Concomitant]
     Active Substance: DIAZEPAM
     Dosage: UNK
  3. GABAPENTIN. [Suspect]
     Active Substance: GABAPENTIN
     Indication: CUBITAL TUNNEL SYNDROME
     Dosage: 100 MG, DAILY (AT NIGHT )

REACTIONS (3)
  - Gait disturbance [Unknown]
  - Off label use [Unknown]
  - Pain in extremity [Unknown]
